FAERS Safety Report 10423717 (Version 3)
Quarter: 2019Q3

REPORT INFORMATION
  Report Type: Report from Study
  Country: TR (occurrence: TR)
  Receive Date: 20140902
  Receipt Date: 20190916
  Transmission Date: 20191004
  Serious: Yes (Death, Life-Threatening, Hospitalization)
  Sender: FDA-Public Use
  Company Number: TR-CELGENEUS-161-C4047-14072943

PATIENT
  Age: 73 Year
  Sex: Male
  Weight: 75 kg

DRUGS (8)
  1. CC-4047 [Suspect]
     Active Substance: POMALIDOMIDE
     Indication: PLASMA CELL MYELOMA
     Dosage: 4 MILLIGRAM
     Route: 048
     Dates: start: 20140714, end: 20140721
  2. HEPARIN [Suspect]
     Active Substance: HEPARIN SODIUM
     Indication: PULMONARY EMBOLISM
     Route: 065
  3. CC-4047 [Suspect]
     Active Substance: POMALIDOMIDE
     Dosage: 3 MILLIGRAM
     Route: 048
     Dates: start: 20140812, end: 20140813
  4. DEXAMETHASONE. [Suspect]
     Active Substance: DEXAMETHASONE
     Indication: PLASMA CELL MYELOMA
     Dosage: 40 MILLIGRAM
     Route: 048
     Dates: start: 20140714, end: 20140721
  5. ENOXAPARIN [Suspect]
     Active Substance: ENOXAPARIN
     Indication: DEEP VEIN THROMBOSIS
     Dosage: .8 MILLILITER
     Route: 058
     Dates: end: 20140721
  6. HEPARIN [Suspect]
     Active Substance: HEPARIN SODIUM
     Indication: DEEP VEIN THROMBOSIS
     Dosage: .8 MILLILITER
     Route: 058
     Dates: end: 20140721
  7. ENOXAPARIN [Suspect]
     Active Substance: ENOXAPARIN
     Indication: PULMONARY EMBOLISM
     Route: 065
  8. CIPROFLOXACIN. [Concomitant]
     Active Substance: CIPROFLOXACIN
     Indication: PROPHYLAXIS
     Dosage: 1000 MILLIGRAM
     Route: 048
     Dates: start: 20140718

REACTIONS (5)
  - Respiratory failure [Fatal]
  - Atrial fibrillation [Not Recovered/Not Resolved]
  - Respiratory acidosis [Not Recovered/Not Resolved]
  - Pulmonary embolism [Recovered/Resolved with Sequelae]
  - Heparin-induced thrombocytopenia [Recovered/Resolved]

NARRATIVE: CASE EVENT DATE: 20140716
